FAERS Safety Report 25385356 (Version 2)
Quarter: 2025Q3

REPORT INFORMATION
  Report Type: Spontaneous
  Country: EU (occurrence: EU)
  Receive Date: 20250602
  Receipt Date: 20250708
  Transmission Date: 20251021
  Serious: Yes (Other)
  Sender: MYLAN
  Company Number: EU-POLPHARMA-PPH6901831

PATIENT
  Age: 58 Year
  Sex: Female

DRUGS (3)
  1. TRAMADOL [Interacting]
     Active Substance: TRAMADOL
     Indication: Back pain
     Dosage: 100 MILLIGRAM, Q8H
  2. TOLPERISONE [Interacting]
     Active Substance: TOLPERISONE
     Indication: Back pain
     Dosage: 150 MILLIGRAM, BID (2 X 150 MG ORALLY)
  3. ACETAMINOPHEN [Concomitant]
     Active Substance: ACETAMINOPHEN
     Indication: Back pain

REACTIONS (3)
  - Pain [Unknown]
  - Drug interaction [Unknown]
  - Drug ineffective [Unknown]
